FAERS Safety Report 4876966-2 (Version None)
Quarter: 2005Q4

REPORT INFORMATION
  Report Type: 
  Country: None (occurrence: None)
  Receive Date: 20051206
  Receipt Date: 20051024
  Transmission Date: 20060501
  Serious: No
  Sender: FDA-Public Use
  Company Number: USA0509108816

PATIENT
  Age: 53 Year
  Sex: Female
  Weight: 50 kg

DRUGS (5)
  1. CYMBALTA [Suspect]
     Indication: MIGRAINE
     Dosage: 60 MG DAY
     Dates: start: 20050223, end: 20050606
  2. BACLOFEN [Concomitant]
  3. ARZOMICIN [Concomitant]
  4. ULTRACET [Concomitant]
  5. LAMICTAL [Concomitant]

REACTIONS (1)
  - HEADACHE [None]
